FAERS Safety Report 9839174 (Version 1)
Quarter: 2014Q1

REPORT INFORMATION
  Report Type: Spontaneous
  Country: CA (occurrence: None)
  Receive Date: 20140116
  Receipt Date: 20140116
  Transmission Date: 20141002
  Serious: Yes (Hospitalization, Other)
  Sender: FDA-Public Use
  Company Number: 2013AP001136

PATIENT
  Age: 54 Year
  Sex: Female

DRUGS (5)
  1. CLOZAPINE (CLOZAPINE) [Suspect]
     Indication: PRODUCT USED FOR UNKNOWN INDICATION
     Dosage: 337.5 MG; QD
  2. OXYBUTYNIN (OXYBUTYNIN) [Concomitant]
  3. VALPROIC ACID (VALPROIC ACID) [Concomitant]
  4. TIOTROPIUM BROMIDE (TIOTROPIUM BROMIDE) [Concomitant]
  5. LITHIUM (LITHIUM) [Suspect]
     Indication: PRODUCT USED FOR UNKNOWN INDICATION

REACTIONS (2)
  - Colonic pseudo-obstruction [None]
  - Antipsychotic drug level increased [None]
